FAERS Safety Report 5034022-7 (Version None)
Quarter: 2006Q2

REPORT INFORMATION
  Report Type: 
  Country: None (occurrence: None)
  Receive Date: 20060626
  Receipt Date: 20060616
  Transmission Date: 20061013
  Serious: Yes (Death)
  Sender: FDA-Public Use
  Company Number: FR-JNJFOC-20060603780

PATIENT
  Age: 80 Year
  Sex: Female
  Weight: 37 kg

DRUGS (7)
  1. HALDOL [Suspect]
     Indication: ALTERED VISUAL DEPTH PERCEPTION
     Route: 058
     Dates: start: 20060601, end: 20060602
  2. HALDOL [Suspect]
     Indication: AGITATION
     Route: 058
     Dates: start: 20060601, end: 20060602
  3. ACUPAN [Concomitant]
     Route: 042
  4. LOVENOX [Concomitant]
     Route: 058
  5. LTHYROXINE [Concomitant]
     Route: 042
  6. NEXIUM [Concomitant]
     Route: 042
  7. ACETAMINOPHEN [Concomitant]
     Route: 042

REACTIONS (3)
  - CARDIOGENIC SHOCK [None]
  - COMA [None]
  - HYPERTHERMIA MALIGNANT [None]
